FAERS Safety Report 19242373 (Version 1)
Quarter: 2021Q2

REPORT INFORMATION
  Report Type: Report from Study
  Country: None (occurrence: KR)
  Receive Date: 20210510
  Receipt Date: 20210510
  Transmission Date: 20210717
  Serious: Yes (Death)
  Sender: FDA-Public Use
  Company Number: KR-ABBVIE-21K-090-3885598-00

PATIENT
  Age: 77 Year
  Sex: Male
  Weight: 76 kg

DRUGS (18)
  1. ZYLORIC [Concomitant]
     Active Substance: ALLOPURINOL
     Indication: PROPHYLAXIS
     Route: 048
     Dates: start: 20210405, end: 20210414
  2. TASNA [Concomitant]
     Indication: CHRONIC KIDNEY DISEASE
     Route: 048
     Dates: start: 20210414, end: 20210426
  3. VENCLEXTA [Interacting]
     Active Substance: VENETOCLAX
     Route: 048
     Dates: start: 20210423, end: 20210425
  4. DEBIKIN [Concomitant]
     Indication: ACUTE MYELOID LEUKAEMIA
     Route: 042
     Dates: start: 20210405, end: 20210409
  5. TRADJENTA [Concomitant]
     Active Substance: LINAGLIPTIN
     Indication: DIABETES MELLITUS
     Route: 048
     Dates: start: 20210330, end: 20210426
  6. FLIVAS [Concomitant]
     Active Substance: NAFTOPIDIL
     Indication: ANGINA PECTORIS
     Route: 048
     Dates: start: 20210330, end: 20210426
  7. RENALMIN [Concomitant]
     Indication: CHRONIC KIDNEY DISEASE
     Route: 048
     Dates: start: 20210402, end: 20210426
  8. VENCLEXTA [Suspect]
     Active Substance: VENETOCLAX
     Indication: ACUTE MYELOID LEUKAEMIA
     Route: 048
     Dates: start: 20210405, end: 20210405
  9. VENCLEXTA [Interacting]
     Active Substance: VENETOCLAX
     Route: 048
     Dates: start: 20210407, end: 20210407
  10. ADALAT [Concomitant]
     Active Substance: NIFEDIPINE
     Indication: HYPERTENSION
     Route: 048
     Dates: start: 20210330, end: 20210425
  11. SEPTRIN [Concomitant]
     Active Substance: SULFAMETHOXAZOLE\TRIMETHOPRIM
     Indication: PROPHYLAXIS
     Route: 048
     Dates: start: 20210421, end: 20210426
  12. VENCLEXTA [Interacting]
     Active Substance: VENETOCLAX
     Route: 048
     Dates: start: 20210408, end: 20210419
  13. LEVOFEXIN [Concomitant]
     Active Substance: LEVOFLOXACIN
     Indication: PROPHYLAXIS
     Route: 048
     Dates: start: 20210421, end: 20210424
  14. ATROVENT UDV [Concomitant]
     Active Substance: IPRATROPIUM BROMIDE
     Indication: ASTHMA
     Route: 055
     Dates: start: 20210427, end: 20210428
  15. VENCLEXTA [Interacting]
     Active Substance: VENETOCLAX
     Route: 048
     Dates: start: 20210406, end: 20210406
  16. NOXAFIL [Concomitant]
     Active Substance: POSACONAZOLE
     Indication: PROPHYLAXIS
     Route: 048
     Dates: start: 20210405, end: 20210426
  17. LAXIS [Concomitant]
     Indication: CHRONIC KIDNEY DISEASE
     Route: 042
     Dates: start: 20210408, end: 20210411
  18. MUCOMYST [Concomitant]
     Active Substance: ACETYLCYSTEINE
     Indication: ASTHMA
     Route: 055
     Dates: start: 20210427, end: 20210428

REACTIONS (2)
  - Neutrophil count decreased [Fatal]
  - Sepsis [Fatal]

NARRATIVE: CASE EVENT DATE: 20210415
